FAERS Safety Report 8518793-0 (Version None)
Quarter: 2012Q3

REPORT INFORMATION
  Report Type: 
  Country: None (occurrence: None)
  Receive Date: 20120718
  Receipt Date: 20120711
  Transmission Date: 20120928
  Serious: Yes (Hospitalization, Other)
  Sender: FDA-Public Use
  Company Number: PHHY2012IT060238

PATIENT
  Sex: Female

DRUGS (1)
  1. TEGRETOL [Suspect]
     Indication: FACIAL NEURALGIA
     Dosage: 2 DF, DAILY
     Route: 048
     Dates: start: 20120502, end: 20120520

REACTIONS (10)
  - THROMBOCYTOPENIA [None]
  - BLOOD GLUCOSE INCREASED [None]
  - RASH MORBILLIFORM [None]
  - DIARRHOEA [None]
  - VOMITING [None]
  - DERMATITIS [None]
  - OXYGEN SATURATION DECREASED [None]
  - RASH [None]
  - NAUSEA [None]
  - BLOOD PRESSURE INCREASED [None]
